FAERS Safety Report 7547173-X (Version None)
Quarter: 2011Q2

REPORT INFORMATION
  Report Type: 
  Country: None (occurrence: None)
  Receive Date: 20110614
  Receipt Date: 20110601
  Transmission Date: 20111010
  Serious: Yes (Other)
  Sender: FDA-Public Use
  Company Number: PHHY2011FR50753

PATIENT
  Sex: Female

DRUGS (2)
  1. AFINITOR [Suspect]
     Indication: CARCINOID TUMOUR
     Dosage: 10 MG, DAILY
     Route: 048
     Dates: start: 20110301
  2. SOMATULINE [Concomitant]
     Dosage: 1 DF, EVERY 10 DAYS

REACTIONS (2)
  - FATIGUE [None]
  - HYPOTHYROIDISM [None]
